FAERS Safety Report 8249039-9 (Version None)
Quarter: 2012Q2

REPORT INFORMATION
  Report Type: 
  Country: None (occurrence: None)
  Receive Date: 20120402
  Receipt Date: 20120323
  Transmission Date: 20120825
  Serious: Yes (Hospitalization, Other)
  Sender: FDA-Public Use
  Company Number: US-BIOGENIDEC-2012BI007665

PATIENT
  Sex: Male
  Weight: 72 kg

DRUGS (19)
  1. VITAMIN B-12 [Concomitant]
  2. SINEMET [Concomitant]
  3. MULTI-VITAMIN [Concomitant]
  4. SENNA [Concomitant]
  5. PRILOSEC [Concomitant]
  6. LIDODERM [Concomitant]
  7. TIZANIDINE HCL [Concomitant]
  8. AMIODARONE HCL [Concomitant]
  9. ATROVENT [Concomitant]
  10. GABAPENTIN [Concomitant]
  11. TYSABRI [Suspect]
     Indication: MULTIPLE SCLEROSIS
     Route: 042
     Dates: start: 20070312, end: 20120131
  12. DETROL LA [Concomitant]
  13. OXYCODONE HCL [Concomitant]
  14. METOPROLOL SUCCINATE [Concomitant]
  15. ASPIRIN [Concomitant]
  16. MAGNESIUM [Concomitant]
  17. FENTANYL-100 [Concomitant]
  18. ZOLOFT [Concomitant]
  19. CELEBREX [Concomitant]

REACTIONS (2)
  - MULTIPLE SCLEROSIS [None]
  - PROGRESSIVE MULTIFOCAL LEUKOENCEPHALOPATHY [None]
